FAERS Safety Report 5067969-6 (Version None)
Quarter: 2006Q3

REPORT INFORMATION
  Report Type: 
  Country: None (occurrence: None)
  Receive Date: 20060711
  Receipt Date: 20010108
  Transmission Date: 20061208
  Serious: Yes (Other)
  Sender: FDA-Public Use
  Company Number: PHEH2001US00645

PATIENT
  Age: 75 Year
  Sex: Female

DRUGS (1)
  1. LOTENSIN HCT [Suspect]
     Indication: HYPERTENSION
     Dosage: 20 MG BENA/12.5 MG HCT, ORAL
     Route: 048

REACTIONS (2)
  - DIZZINESS [None]
  - SYNCOPE [None]
